FAERS Safety Report 4553262-4 (Version None)
Quarter: 2005Q1

REPORT INFORMATION
  Report Type: 
  Country: None (occurrence: None)
  Receive Date: 20050113
  Receipt Date: 20050107
  Transmission Date: 20050727
  Serious: Yes (Hospitalization)
  Sender: FDA-Public Use
  Company Number: S04-FRA-03963-02

PATIENT
  Age: 7 Day
  Sex: Female

DRUGS (3)
  1. CITALOPRAM HYDROBROMIDE [Suspect]
     Dates: start: 20020615, end: 20040712
  2. EUPHYTOSE [Suspect]
     Dates: start: 20020615
  3. VITAMIN K [Concomitant]

REACTIONS (7)
  - CEREBRAL HAEMORRHAGE NEONATAL [None]
  - CONGENITAL HYDROCEPHALUS [None]
  - DRUG EXPOSURE DURING PREGNANCY [None]
  - FEVER NEONATAL [None]
  - NEONATAL DISORDER [None]
  - NEONATAL INFECTION [None]
  - THROMBOCYTHAEMIA [None]
